FAERS Safety Report 9728735 (Version 2)
Quarter: 2013Q4

REPORT INFORMATION
  Report Type: Spontaneous
  Country: BR (occurrence: BR)
  Receive Date: 20131204
  Receipt Date: 20131209
  Transmission Date: 20140711
  Serious: Yes (Death, Hospitalization, Other)
  Sender: FDA-Public Use
  Company Number: BR-PFIZER INC-2013344026

PATIENT
  Age: 78 Year
  Sex: Female
  Weight: 53 kg

DRUGS (2)
  1. LYRICA [Suspect]
     Indication: PAIN
     Dosage: 75 MG, 1X/DAY
     Route: 048
     Dates: start: 20130405
  2. LYRICA [Suspect]
     Indication: PAIN

REACTIONS (8)
  - Intentional drug misuse [Fatal]
  - Cardiac arrest [Fatal]
  - Choking [Unknown]
  - Aspiration [Unknown]
  - Respiratory failure [Unknown]
  - Dysphagia [Unknown]
  - Pneumonia [Unknown]
  - Condition aggravated [Unknown]
